FAERS Safety Report 7772683-X (Version None)
Quarter: 2011Q3

REPORT INFORMATION
  Report Type: 
  Country: None (occurrence: None)
  Receive Date: 20110922
  Receipt Date: 20100115
  Transmission Date: 20111222
  Serious: No
  Sender: FDA-Public Use
  Company Number: US-ASTRAZENECA-2009SE19372

PATIENT
  Age: 532 Month
  Sex: Male
  Weight: 81.6 kg

DRUGS (3)
  1. LEXAPRO [Concomitant]
     Dosage: 10-30 MG
     Dates: start: 20050501
  2. SEROQUEL [Suspect]
     Indication: SLEEP DISORDER
     Route: 048
     Dates: start: 20060201, end: 20080301
  3. SEROQUEL [Suspect]
     Route: 048
     Dates: start: 20060426, end: 20080301

REACTIONS (2)
  - OBESITY [None]
  - TYPE 2 DIABETES MELLITUS [None]
